FAERS Safety Report 14789766 (Version 5)
Quarter: 2019Q2

REPORT INFORMATION
  Report Type: Spontaneous
  Country: US (occurrence: US)
  Receive Date: 20180423
  Receipt Date: 20190408
  Transmission Date: 20190711
  Serious: No
  Sender: FDA-Public Use
  Company Number: US-PFIZER INC-2018161161

PATIENT
  Age: 70 Year
  Sex: Male
  Weight: 153.31 kg

DRUGS (11)
  1. LATANOPROST. [Suspect]
     Active Substance: LATANOPROST
     Indication: GLAUCOMA
     Dosage: 2 GTT, 1X/DAY (0.005% 125MCG/2.5ML 1 DROP IN EACH EYE IN THE EVENING)
  2. BETA-SITOSTEROL [Concomitant]
     Indication: PROSTATIC DISORDER
     Dosage: 375 MG, 1X/DAY
     Route: 048
  3. ZINC. [Concomitant]
     Active Substance: ZINC
     Indication: ROUTINE HEALTH MAINTENANCE
     Dosage: 50 MG, 1X/DAY
     Route: 048
     Dates: start: 1985
  4. LATANOPROST. [Suspect]
     Active Substance: LATANOPROST
     Dosage: 2 GTT, 1X/DAY (0.005% 125MCG/2.5ML 1 DROP IN EACH EYE IN THE EVENING)
  5. BABY ASPIRIN [Concomitant]
     Active Substance: ASPIRIN
     Indication: CARDIAC DISORDER
     Dosage: 81 MG, 1X/DAY (81MG 1 COATED TABLET BY MOUTH ONCE A DAY MORNING)
     Route: 048
  6. PROPAFENONE. [Concomitant]
     Active Substance: PROPAFENONE
     Indication: ATRIAL FIBRILLATION
     Dosage: 225 MG, 3X/DAY
     Route: 048
  7. CALCIUM [Concomitant]
     Active Substance: CALCIUM
     Indication: ROUTINE HEALTH MAINTENANCE
     Dosage: 1 DF, 1X/DAY
     Route: 048
  8. COENZYME Q10 [Concomitant]
     Active Substance: UBIDECARENONE
     Indication: ROUTINE HEALTH MAINTENANCE
     Dosage: 200 MG, 1X/DAY
     Route: 048
  9. BIOTIN [Concomitant]
     Active Substance: BIOTIN
     Indication: HAIR DISORDER
     Dosage: 1 DF, 1X/DAY
     Route: 048
  10. OCUVITE [Concomitant]
     Active Substance: VITAMINS
     Indication: SUPPLEMENTATION THERAPY
     Dosage: 1 DF, 1X/DAY
     Route: 048
  11. ASPRIN [Concomitant]
     Active Substance: ASPIRIN
     Indication: CARDIAC DISORDER
     Dosage: 325 MG, 1X/DAY
     Route: 048

REACTIONS (4)
  - Product leakage [Unknown]
  - Eye pain [Not Recovered/Not Resolved]
  - Product container issue [Unknown]
  - Accidental exposure to product [Unknown]

NARRATIVE: CASE EVENT DATE: 20180416
